FAERS Safety Report 4698109-0 (Version None)
Quarter: 2005Q2

REPORT INFORMATION
  Report Type: 
  Country: None (occurrence: None)
  Receive Date: 20050622
  Receipt Date: 20050622
  Transmission Date: 20051028
  Serious: Yes (Hospitalization)
  Sender: FDA-Public Use
  Company Number: None

PATIENT
  Age: 86 Year
  Sex: Female
  Weight: 83 kg

DRUGS (13)
  1. GABAPENTIN    200MG [Suspect]
     Dosage: 200MG   BID  ORAL
     Route: 048
  2. CARDIZEM CD [Concomitant]
  3. LANOXIN [Concomitant]
  4. NOVOLOG [Concomitant]
  5. LASIX [Concomitant]
  6. VITAMIN B-12 [Concomitant]
  7. CALCIUM/VITAMIN D [Concomitant]
  8. ARICEPT [Concomitant]
  9. MIACALCIN [Concomitant]
  10. FLONASE [Concomitant]
  11. PREVACID [Concomitant]
  12. EFFEXOR [Concomitant]
  13. LOPI [Concomitant]

REACTIONS (2)
  - MENTAL STATUS CHANGES [None]
  - MYOCLONUS [None]
